FAERS Safety Report 18031687 (Version 1)
Quarter: 2020Q3

REPORT INFORMATION
  Report Type: Spontaneous
  Country: US (occurrence: US)
  Receive Date: 20200716
  Receipt Date: 20200716
  Transmission Date: 20201103
  Serious: Yes (Hospitalization, Other)
  Sender: FDA-Public Use
  Company Number: None

PATIENT
  Age: 53 Year
  Sex: Male
  Weight: 87.2 kg

DRUGS (1)
  1. AXICABTAGENE?CILOLEUCEL CAR T?CELL [Suspect]
     Active Substance: AXICABTAGENE CILOLEUCEL
     Indication: DIFFUSE LARGE B-CELL LYMPHOMA
     Dosage: ?          OTHER FREQUENCY:ONCE;?
     Route: 042
     Dates: start: 20200608, end: 20200608

REACTIONS (3)
  - Seizure [None]
  - Toxicity to various agents [None]
  - Hypoxia [None]

NARRATIVE: CASE EVENT DATE: 20200608
